FAERS Safety Report 8358249-1 (Version None)
Quarter: 2012Q2

REPORT INFORMATION
  Report Type: 
  Country: None (occurrence: None)
  Receive Date: 20120514
  Receipt Date: 20120504
  Transmission Date: 20120825
  Serious: Yes (Hospitalization)
  Sender: FDA-Public Use
  Company Number: DE-GLAXOSMITHKLINE-D0075305A

PATIENT
  Sex: Male
  Weight: 100 kg

DRUGS (2)
  1. ALCOHOL [Suspect]
     Route: 048
  2. ZYBAN [Suspect]
     Route: 048

REACTIONS (5)
  - SOMNOLENCE [None]
  - COMA [None]
  - ACIDOSIS [None]
  - RESPIRATORY FAILURE [None]
  - DRUG ABUSE [None]
